FAERS Safety Report 21351478 (Version 1)
Quarter: 2022Q3

REPORT INFORMATION
  Report Type: Spontaneous
  Country: US (occurrence: US)
  Receive Date: 20220919
  Receipt Date: 20220919
  Transmission Date: 20221027
  Serious: No
  Sender: FDA-Public Use
  Company Number: US-SANOFI-01280790

PATIENT
  Age: 19 Year
  Sex: Male

DRUGS (1)
  1. THYMOGLOBULIN [Suspect]
     Active Substance: LAPINE T-LYMPHOCYTE IMMUNE GLOBULIN
     Indication: Transplant

REACTIONS (5)
  - Peripheral swelling [Unknown]
  - Feeling hot [Unknown]
  - Erythema [Unknown]
  - Pain in extremity [Unknown]
  - Incorrect route of product administration [Unknown]
